FAERS Safety Report 5727187-2 (Version None)
Quarter: 2008Q2

REPORT INFORMATION
  Report Type: 
  Country: None (occurrence: None)
  Receive Date: 20080505
  Receipt Date: 20080421
  Transmission Date: 20081010
  Serious: Yes (Life-Threatening, Hospitalization)
  Sender: FDA-Public Use
  Company Number: ES-TYCO HEALTHCARE/MALLINCKRODT-T200800663

PATIENT

DRUGS (1)
  1. OPTIRAY ULTRAJECT 320 [Suspect]
     Indication: COMPUTERISED TOMOGRAM
     Dosage: 120 ML, SINGLE
     Route: 042
     Dates: start: 20080406, end: 20080406

REACTIONS (4)
  - ACUTE PULMONARY OEDEMA [None]
  - BRONCHOSPASM [None]
  - COUGH [None]
  - NAUSEA [None]
